FAERS Safety Report 13827886 (Version 2)
Quarter: 2017Q3

REPORT INFORMATION
  Report Type: Spontaneous
  Country: IL (occurrence: IL)
  Receive Date: 20170803
  Receipt Date: 20170814
  Transmission Date: 20171127
  Serious: Yes (Hospitalization, Disabling)
  Sender: FDA-Public Use
  Company Number: IL-009507513-1708ISR000711

PATIENT
  Age: 58 Year
  Sex: Female

DRUGS (2)
  1. KEYTRUDA [Suspect]
     Active Substance: PEMBROLIZUMAB
     Indication: HEPATIC NEOPLASM
     Dosage: THREE CYCLES OF KEYTRUDA
  2. KEYTRUDA [Suspect]
     Active Substance: PEMBROLIZUMAB
     Indication: OVARIAN THECA CELL TUMOUR

REACTIONS (4)
  - Vision blurred [Not Recovered/Not Resolved]
  - Visual acuity reduced [Unknown]
  - Product use in unapproved indication [Unknown]
  - Oedema peripheral [Not Recovered/Not Resolved]
